FAERS Safety Report 21057610 (Version 1)
Quarter: 2022Q3

REPORT INFORMATION
  Report Type: Report from Study
  Country: BG (occurrence: BG)
  Receive Date: 20220708
  Receipt Date: 20220708
  Transmission Date: 20221027
  Serious: Yes (Hospitalization)
  Sender: FDA-Public Use
  Company Number: BG-PFIZER INC-2019462306

PATIENT
  Age: 69 Year
  Sex: Female
  Weight: 96.4 kg

DRUGS (9)
  1. ABROCITINIB [Suspect]
     Active Substance: ABROCITINIB
     Indication: Dermatitis atopic
     Dosage: 200 MG, DAILY
     Route: 048
     Dates: start: 20190425, end: 20191017
  2. PIRACETAM [Concomitant]
     Active Substance: PIRACETAM
     Indication: Cerebrovascular disorder
     Dosage: 1200 MG, 1X/DAY
     Route: 048
     Dates: start: 2015
  3. VINPOCETINE [Concomitant]
     Active Substance: VINPOCETINE
     Indication: Cerebrovascular disorder
     Dosage: 10 MG, 1X/DAY
     Route: 048
     Dates: start: 2015
  4. BISOPROLOL FUMARATE [Concomitant]
     Active Substance: BISOPROLOL FUMARATE
     Indication: Hypertension
     Dosage: 5 MG, 1X/DAY
     Route: 048
     Dates: start: 2017
  5. ROSUVASTATIN [Concomitant]
     Active Substance: ROSUVASTATIN
     Indication: Myocardial ischaemia
     Dosage: 10 MG, 1X/DAY
     Route: 048
     Dates: start: 2003
  6. CANDESARTAN CILEXETIL\HYDROCHLOROTHIAZIDE [Concomitant]
     Active Substance: CANDESARTAN CILEXETIL\HYDROCHLOROTHIAZIDE
     Indication: Hypertension
     Dosage: [CANDESARTAN CILEXETIL 8MG]/ [HYDROCHLOROTHIAZIDE 12.5MG], 1X/DAY
     Route: 048
     Dates: start: 2017
  7. CANDESARTAN [Concomitant]
     Active Substance: CANDESARTAN
     Indication: Hypertension
     Dosage: 8 MG, 1X/DAY
     Route: 048
     Dates: start: 2017
  8. LACTOBACILLUS ACIDOPHILUS [Concomitant]
     Active Substance: LACTOBACILLUS ACIDOPHILUS
     Indication: Cystitis
     Dosage: SPP, 1 TABLET, 1X/DAY
     Route: 048
     Dates: start: 20190803
  9. NORFLOXACIN [Concomitant]
     Active Substance: NORFLOXACIN
     Indication: Pyelonephritis chronic
     Dosage: 400 MG, 2X/DAY
     Route: 048
     Dates: start: 20191018, end: 20191022

REACTIONS (1)
  - Chronic hepatitis [Recovered/Resolved]

NARRATIVE: CASE EVENT DATE: 20191023
